FAERS Safety Report 25402292 (Version 1)
Quarter: 2025Q2

REPORT INFORMATION
  Report Type: Spontaneous
  Country: US (occurrence: None)
  Receive Date: 20250605
  Receipt Date: 20250605
  Transmission Date: 20250716
  Serious: Yes (Hospitalization)
  Sender: FDA-CTU
  Company Number: None

PATIENT
  Age: 33 Year
  Sex: Female
  Weight: 65.25 kg

DRUGS (3)
  1. AUROVELA FE 1/20 [Suspect]
     Active Substance: ETHINYL ESTRADIOL\NORETHINDRONE ACETATE
     Indication: Vaginal haemorrhage
     Route: 048
     Dates: start: 20240901, end: 20250605
  2. IRON [Concomitant]
     Active Substance: IRON
     Dosage: FREQUENCY : DAILY;?
  3. VITAMIN D3 [Concomitant]
     Active Substance: CHOLECALCIFEROL
     Dosage: FREQUENCY : DAILY;?

REACTIONS (4)
  - Tremor [None]
  - Adrenal disorder [None]
  - Hypertension [None]
  - Hepatic neoplasm [None]

NARRATIVE: CASE EVENT DATE: 20241201
